FAERS Safety Report 19395706 (Version 3)
Quarter: 2021Q2

REPORT INFORMATION
  Report Type: Report from Study
  Country: TW (occurrence: TW)
  Receive Date: 20210609
  Receipt Date: 20210623
  Transmission Date: 20210717
  Serious: Yes (Hospitalization)
  Sender: FDA-Public Use
  Company Number: TW-TAIHO ONCOLOGY  INC-CN-2021-00060

PATIENT
  Age: 50 Year
  Sex: Male

DRUGS (6)
  1. IRINOTECAN MONOHYDROCHLORIDE TRIHYDRATE [Suspect]
     Active Substance: IRINOTECAN HYDROCHLORIDE
     Indication: PANCREATIC NEUROENDOCRINE TUMOUR
     Dosage: CYCLE 1?3
     Route: 041
     Dates: start: 20210225, end: 20210415
  2. IRINOTECAN MONOHYDROCHLORIDE TRIHYDRATE [Suspect]
     Active Substance: IRINOTECAN HYDROCHLORIDE
     Dosage: CYCLE 4
     Route: 041
     Dates: start: 20210429, end: 20210429
  3. FILGRASTIM [Concomitant]
     Active Substance: FILGRASTIM
     Indication: PANCREATIC NEUROENDOCRINE TUMOUR
     Route: 065
     Dates: start: 20210304, end: 20210522
  4. TAS?102 [Suspect]
     Active Substance: TIPIRACIL HYDROCHLORIDE\TRIFLURIDINE
     Dosage: CYCLE 2?5
     Route: 048
     Dates: start: 20210319, end: 20210517
  5. IRINOTECAN MONOHYDROCHLORIDE TRIHYDRATE [Suspect]
     Active Substance: IRINOTECAN HYDROCHLORIDE
     Dosage: CYCLE 5
     Route: 041
     Dates: start: 20210513, end: 20210513
  6. TAS?102 [Suspect]
     Active Substance: TIPIRACIL HYDROCHLORIDE\TRIFLURIDINE
     Indication: PANCREATIC NEUROENDOCRINE TUMOUR
     Dosage: CYCLE 1
     Route: 048
     Dates: start: 20210225, end: 20210301

REACTIONS (1)
  - Hypokalaemia [Recovered/Resolved]

NARRATIVE: CASE EVENT DATE: 20210527
